FAERS Safety Report 21854159 (Version 1)
Quarter: 2023Q1

REPORT INFORMATION
  Report Type: Spontaneous
  Country: GB (occurrence: GB)
  Receive Date: 20230112
  Receipt Date: 20230112
  Transmission Date: 20230417
  Serious: Yes (Other)
  Sender: FDA-Public Use
  Company Number: GB-MYLANLABS-2022M1141552

PATIENT
  Age: 74 Year
  Sex: Male

DRUGS (1)
  1. LATANOPROST [Suspect]
     Active Substance: LATANOPROST
     Indication: Open angle glaucoma
     Dosage: 0.005 PERCENT, QD
     Route: 047

REACTIONS (5)
  - Blepharitis [Recovering/Resolving]
  - Tear break up time decreased [Recovered/Resolved]
  - Punctate keratitis [Recovering/Resolving]
  - Intentional product misuse [Recovering/Resolving]
  - Treatment noncompliance [Recovering/Resolving]
